FAERS Safety Report 19194553 (Version 1)
Quarter: 2021Q2

REPORT INFORMATION
  Report Type: Report from Study
  Country: GB (occurrence: GB)
  Receive Date: 20210429
  Receipt Date: 20210429
  Transmission Date: 20210717
  Serious: Yes (Death, Other)
  Sender: FDA-Public Use
  Company Number: GB-SA-2021SA140893

PATIENT

DRUGS (4)
  1. DOCETAXEL. [Suspect]
     Active Substance: DOCETAXEL
     Indication: NEOPLASM
     Dosage: 75 MG/M2,OVER 1 H IMMEDIATELY FOLLOWING NAVITOCLAX ADMINISTRATION ON DAY 1.
     Route: 042
  2. NAVITOCLAX [Suspect]
     Active Substance: NAVITOCLAX
     Dosage: 200 MG,ON DAYS 1?3, 8?10 AND 15?17 EVERY 28 DAYS,
     Route: 048
  3. DOCETAXEL. [Suspect]
     Active Substance: DOCETAXEL
     Dosage: 30 MG/M2,ON DAYS 1, 8 AND 15
     Route: 042
  4. NAVITOCLAX [Suspect]
     Active Substance: NAVITOCLAX
     Indication: NEOPLASM
     Dosage: 150 MG, QD,AS A LIQUID FORMULATION VIA SYRINGE ON DAYS 1?5 OR 1?3 EVERY 21 DAYS
     Route: 048

REACTIONS (2)
  - Demyelination [Fatal]
  - Neuropathy peripheral [Fatal]
